FAERS Safety Report 18972960 (Version 2)
Quarter: 2021Q1

REPORT INFORMATION
  Report Type: Spontaneous
  Country: NP (occurrence: NP)
  Receive Date: 20210305
  Receipt Date: 20210319
  Transmission Date: 20210420
  Serious: Yes (Life-Threatening, Hospitalization, Other)
  Sender: FDA-Public Use
  Company Number: NP-AXELLIA-003705

PATIENT
  Age: 9 Year
  Sex: Female

DRUGS (1)
  1. VANCOMYCIN [Suspect]
     Active Substance: VANCOMYCIN
     Indication: PROPHYLAXIS
     Dosage: AT AROUND 10 PM, ACCIDENTLY INFUSED IN ABOUT 5 MINUTES WITH SALINE
     Route: 042

REACTIONS (2)
  - Cardiac arrest [Recovered/Resolved]
  - Incorrect product administration duration [Unknown]
